FAERS Safety Report 10396177 (Version 1)
Quarter: 2014Q1

REPORT INFORMATION
  Report Type: Spontaneous
  Country: US (occurrence: None)
  Receive Date: 20130815
  Receipt Date: 20130815
  Transmission Date: 20141002
  Serious: Yes (Other)
  Sender: FDA-Public Use
  Company Number: ADR-2012-01837

PATIENT
  Sex: Male

DRUGS (3)
  1. BACLOFEN - 500 MCG/ML [Suspect]
     Indication: PAIN
  2. CLONIDINE [Concomitant]
  3. DILAUDID (HYDROMORPHONE) [Concomitant]

REACTIONS (10)
  - Dehydration [None]
  - Drug withdrawal syndrome [None]
  - Malaise [None]
  - Nausea [None]
  - Pain [None]
  - Hyperhidrosis [None]
  - Somnolence [None]
  - Asthenia [None]
  - Weight decreased [None]
  - Musculoskeletal disorder [None]
